FAERS Safety Report 8277320-6 (Version None)
Quarter: 2012Q2

REPORT INFORMATION
  Report Type: 
  Country: None (occurrence: None)
  Receive Date: 20120412
  Receipt Date: 20120402
  Transmission Date: 20120825
  Serious: Yes (Death, Hospitalization)
  Sender: FDA-Public Use
  Company Number: FR-GLAXOSMITHKLINE-B0792581A

PATIENT
  Sex: Female

DRUGS (10)
  1. ARIXTRA [Suspect]
     Indication: PULMONARY EMBOLISM
     Dosage: 7.5MG PER DAY
     Route: 058
     Dates: start: 20120224, end: 20120310
  2. LERCANIDIPINE [Concomitant]
     Dosage: 1UNIT PER DAY
  3. OXAZEPAM [Concomitant]
  4. ZOLOFT [Concomitant]
     Dosage: 1UNIT PER DAY
  5. COLCHICINE [Concomitant]
     Dates: start: 20120228, end: 20120309
  6. HYPERIUM [Concomitant]
     Dosage: 1UNIT PER DAY
  7. XANAX [Concomitant]
     Dosage: .25UNIT THREE TIMES PER DAY
  8. ENDOTELON [Concomitant]
     Dates: end: 20120228
  9. LASIX [Concomitant]
     Dosage: 20MG PER DAY
  10. PREDNISOLONE [Concomitant]
     Dates: start: 20120306, end: 20120309

REACTIONS (15)
  - HYPOXIA [None]
  - JOINT EFFUSION [None]
  - ANAEMIA [None]
  - SEPSIS [None]
  - ACUTE RESPIRATORY DISTRESS SYNDROME [None]
  - ABDOMINAL PAIN [None]
  - INTRA-ABDOMINAL HAEMATOMA [None]
  - SHOCK [None]
  - SHOCK HAEMORRHAGIC [None]
  - ANURIA [None]
  - METABOLIC ACIDOSIS [None]
  - INCORRECT DRUG ADMINISTRATION DURATION [None]
  - HAEMODYNAMIC INSTABILITY [None]
  - MUSCLE HAEMORRHAGE [None]
  - RETROPERITONEAL HAEMATOMA [None]
